FAERS Safety Report 7137920-3 (Version None)
Quarter: 2010Q4

REPORT INFORMATION
  Report Type: 
  Country: None (occurrence: None)
  Receive Date: 20101103
  Receipt Date: 20100609
  Transmission Date: 20110411
  Serious: Yes (Other)
  Sender: FDA-Public Use
  Company Number: US-WYE-H15827810

PATIENT
  Age: 30 Year
  Sex: Female

DRUGS (2)
  1. EFFEXOR XR [Suspect]
     Dosage: RESTARTED MEDICATION AT UNKNOWN DOSE ; 75  MG 2X PER 1 DAY, ORAL
     Route: 048
     Dates: end: 20100601
  2. EFFEXOR XR [Suspect]
     Dosage: RESTARTED MEDICATION AT UNKNOWN DOSE ; 75  MG 2X PER 1 DAY, ORAL
     Route: 048
     Dates: start: 20100601

REACTIONS (5)
  - DRUG WITHDRAWAL SYNDROME [None]
  - FEELING ABNORMAL [None]
  - HOT FLUSH [None]
  - NAUSEA [None]
  - TREMOR [None]
